FAERS Safety Report 9278387 (Version 1)
Quarter: 2013Q2

REPORT INFORMATION
  Report Type: Spontaneous
  Country: PL (occurrence: PL)
  Receive Date: 20130508
  Receipt Date: 20130508
  Transmission Date: 20140414
  Serious: Yes (Hospitalization)
  Sender: FDA-Public Use
  Company Number: PL-MYLANLABS-2013S1009304

PATIENT
  Age: 49 Year
  Sex: Male

DRUGS (7)
  1. DOXEPIN [Suspect]
     Indication: INTENTIONAL OVERDOSE
     Dosage: INGESTED 150 X 25MG TABLETS
     Route: 048
  2. DOXEPIN [Suspect]
     Indication: INTENTIONAL OVERDOSE
     Dosage: INGESTED 91 X 10MG TABLETS
     Route: 048
  3. LUMINAL [Suspect]
     Indication: INTENTIONAL OVERDOSE
     Dosage: INGESTED 19 TABLETS
     Route: 048
  4. LORAFEN [Suspect]
     Indication: INTENTIONAL OVERDOSE
     Dosage: INGESTED 50 TABLETS
     Route: 048
  5. VALIUM [Suspect]
     Indication: INTENTIONAL OVERDOSE
     Dosage: INGESTED AN UNKNOWN QUANTITY
     Route: 048
  6. LORAFEN [Concomitant]
     Indication: INSOMNIA
     Route: 065
  7. TRAMAL [Concomitant]
     Indication: SPINAL PAIN
     Route: 065

REACTIONS (8)
  - Coma [Recovering/Resolving]
  - Pupils unequal [Recovering/Resolving]
  - Intentional overdose [Recovering/Resolving]
  - Suicide attempt [Recovering/Resolving]
  - Blood pH decreased [None]
  - PCO2 increased [None]
  - PO2 increased [None]
  - White blood cell count increased [None]
